FAERS Safety Report 9656804 (Version 1)
Quarter: 2013Q4

REPORT INFORMATION
  Report Type: Spontaneous
  Country: IN (occurrence: IN)
  Receive Date: 20131030
  Receipt Date: 20131030
  Transmission Date: 20140711
  Serious: Yes (Hospitalization)
  Sender: FDA-Public Use
  Company Number: IN-ASTRAZENECA-2013SE77653

PATIENT
  Age: 48 Year
  Sex: Female

DRUGS (4)
  1. ANASTROZOLE [Suspect]
     Indication: BREAST CANCER
     Route: 048
  2. TAMOXIFEN [Suspect]
     Route: 048
  3. CALCIUM SUPPLEMENT [Concomitant]
  4. ZOLEDRONIC ACID [Concomitant]
     Dosage: 4 MG IN 100 ML SALINE, ONCE IN 6 MONTHS

REACTIONS (3)
  - Tardive dyskinesia [Recovering/Resolving]
  - Uterine leiomyoma [Unknown]
  - Osteopenia [Unknown]
